FAERS Safety Report 15537942 (Version 1)
Quarter: 2018Q4

REPORT INFORMATION
  Report Type: Spontaneous
  Country: US (occurrence: US)
  Receive Date: 20181022
  Receipt Date: 20181022
  Transmission Date: 20190205
  Serious: Yes (Hospitalization)
  Sender: FDA-Public Use
  Company Number: US-LANNETT COMPANY, INC.-US-2018LAN001231

PATIENT
  Age: 63 Year
  Sex: Female

DRUGS (1)
  1. PHENTERMINE HYDROCHLORIDE (37.5MG) [Suspect]
     Active Substance: PHENTERMINE HYDROCHLORIDE
     Indication: WEIGHT CONTROL
     Dosage: UNK
     Route: 065

REACTIONS (2)
  - Cerebral haemorrhage [Unknown]
  - Hypertension [Unknown]
